FAERS Safety Report 7077798-X (Version None)
Quarter: 2010Q4

REPORT INFORMATION
  Report Type: 
  Country: None (occurrence: None)
  Receive Date: 20101101
  Receipt Date: 20101019
  Transmission Date: 20110411
  Serious: Yes (Hospitalization)
  Sender: FDA-Public Use
  Company Number: PHHY2010US70874

PATIENT
  Sex: Female
  Weight: 94 kg

DRUGS (1)
  1. RECLAST [Suspect]
     Indication: OSTEOPOROSIS
     Dosage: ONCE PER YEAR
     Dates: start: 20081001

REACTIONS (5)
  - FALL [None]
  - PHYSIOTHERAPY [None]
  - REHABILITATION THERAPY [None]
  - SHOULDER ARTHROPLASTY [None]
  - UPPER LIMB FRACTURE [None]
